FAERS Safety Report 19521774 (Version 5)
Quarter: 2021Q3

REPORT INFORMATION
  Report Type: Spontaneous
  Country: DE (occurrence: DE)
  Receive Date: 20210713
  Receipt Date: 20210913
  Transmission Date: 20211014
  Serious: Yes (Death, Life-Threatening, Hospitalization, Other)
  Sender: FDA-Public Use
  Company Number: DE-AUROBINDO-AUR-APL-2021-029024

PATIENT
  Age: 55 Year
  Sex: Female
  Weight: 52.4 kg

DRUGS (12)
  1. CYTARABINE. [Suspect]
     Active Substance: CYTARABINE
     Dosage: 2000 MILLIGRAM/SQ. METER
     Route: 065
     Dates: start: 20210322
  2. CYTARABINE. [Suspect]
     Active Substance: CYTARABINE
     Dosage: 1500 MILLIGRAM, ONCE A DAY
     Route: 065
     Dates: start: 20210317, end: 20210317
  3. DAUNORUBICIN [Suspect]
     Active Substance: DAUNORUBICIN
     Dosage: 90 MILLIGRAM, ONCE A DAY
     Route: 065
     Dates: start: 20210317, end: 20210319
  4. CYTARABINE. [Suspect]
     Active Substance: CYTARABINE
     Dosage: 1500 MILLIGRAM, ONCE A DAY
     Route: 065
     Dates: start: 20210323, end: 20210323
  5. GILTERITINIB [Suspect]
     Active Substance: GILTERITINIB
     Indication: PRODUCT USED FOR UNKNOWN INDICATION
     Dosage: 80 MILLIGRAM, ONCE A DAY
     Route: 065
     Dates: start: 20210324, end: 20210406
  6. POSACONAZOLE [Suspect]
     Active Substance: POSACONAZOLE
     Indication: PRODUCT USED FOR UNKNOWN INDICATION
     Dosage: 300 MILLIGRAM, ONCE A DAY
     Route: 065
     Dates: start: 20210204
  7. GILTERITINIB [Suspect]
     Active Substance: GILTERITINIB
     Dosage: 80 MILLIGRAM
     Route: 065
     Dates: start: 20210406
  8. DAUNORUBICIN [Suspect]
     Active Substance: DAUNORUBICIN
     Indication: PRODUCT USED FOR UNKNOWN INDICATION
     Dosage: 60 MILLIGRAM/SQ. METER
     Route: 065
     Dates: start: 20210317
  9. ONDANSETRON [Suspect]
     Active Substance: ONDANSETRON
     Indication: PRODUCT USED FOR UNKNOWN INDICATION
     Dosage: 16 MILLIGRAM, ONCE A DAY
     Route: 065
     Dates: start: 20210317, end: 20210326
  10. CYTARABINE. [Suspect]
     Active Substance: CYTARABINE
     Indication: PRODUCT USED FOR UNKNOWN INDICATION
     Dosage: 2000 MILLIGRAM/SQ. METER
     Route: 065
     Dates: start: 20210317
  11. CYTARABINE. [Suspect]
     Active Substance: CYTARABINE
     Dosage: 3000 MILLIGRAM, ONCE A DAY
     Route: 065
     Dates: start: 20210318, end: 20210322
  12. DAUNORUBICIN [Suspect]
     Active Substance: DAUNORUBICIN
     Dosage: 60 MILLIGRAM/SQ. METER
     Route: 065
     Dates: start: 20210319

REACTIONS (20)
  - Death [Fatal]
  - Septic shock [Fatal]
  - Ejection fraction decreased [Not Recovered/Not Resolved]
  - Electrocardiogram PR shortened [Unknown]
  - Tachycardia [Not Recovered/Not Resolved]
  - Electrocardiogram ST segment depression [Unknown]
  - Herpes simplex [Unknown]
  - Organ failure [Not Recovered/Not Resolved]
  - Respiratory failure [Not Recovered/Not Resolved]
  - Staphylococcal infection [Not Recovered/Not Resolved]
  - Cardiogenic shock [Fatal]
  - Left atrial hypertrophy [Unknown]
  - Lung opacity [Unknown]
  - Electrocardiogram QT prolonged [Not Recovered/Not Resolved]
  - Cardiac dysfunction [Not Recovered/Not Resolved]
  - Lung infiltration [Unknown]
  - Pleural effusion [Unknown]
  - Pulmonary oedema [Not Recovered/Not Resolved]
  - Atypical pneumonia [Not Recovered/Not Resolved]
  - Respiratory disorder [Unknown]

NARRATIVE: CASE EVENT DATE: 20210324
